FAERS Safety Report 5322744-X (Version None)
Quarter: 2007Q2

REPORT INFORMATION
  Report Type: 
  Country: None (occurrence: None)
  Receive Date: 20070511
  Receipt Date: 20070426
  Transmission Date: 20071010
  Serious: Yes (Hospitalization)
  Sender: FDA-Public Use
  Company Number: US-SHR-US-2006-039534

PATIENT
  Age: 47 Year
  Sex: Female
  Weight: 65.76 kg

DRUGS (5)
  1. BETASERON [Suspect]
     Indication: RELAPSING-REMITTING MULTIPLE SCLEROSIS
     Dosage: 8 MIU, EVERY 2D
     Route: 058
     Dates: start: 20020701
  2. IRESSA [Concomitant]
     Dosage: 250 MG, 1X/DAY
     Route: 048
  3. PROTONIX [Concomitant]
     Dosage: 20 MG, 1X/DAY
     Route: 048
  4. WELLBUTRIN [Concomitant]
     Dosage: 300 MG, 1X/DAY
     Route: 048
  5. ZETIA [Concomitant]
     Dosage: 10 MG, 1X/DAY
     Route: 048

REACTIONS (1)
  - OSTEOCHONDROSIS [None]
